FAERS Safety Report 15554139 (Version 2)
Quarter: 2020Q2

REPORT INFORMATION
  Report Type: Spontaneous
  Country: GB (occurrence: GB)
  Receive Date: 20181026
  Receipt Date: 20200401
  Transmission Date: 20200713
  Serious: Yes (Hospitalization, Other)
  Sender: FDA-Public Use
  Company Number: GB-SUN PHARMACEUTICAL INDUSTRIES LTD-2018RR-189395

PATIENT
  Sex: Female

DRUGS (5)
  1. SINEMET PLUS [Suspect]
     Active Substance: CARBIDOPA\LEVODOPA
     Indication: PARKINSON^S DISEASE
     Dosage: UNK ()
     Route: 048
     Dates: start: 2001
  2. PRAMIPEXOL [Suspect]
     Active Substance: PRAMIPEXOLE
     Indication: PARKINSON^S DISEASE
     Dosage: UNK ()
     Route: 065
     Dates: start: 2001
  3. RASAGILINE. [Suspect]
     Active Substance: RASAGILINE
     Indication: PARKINSON^S DISEASE
     Dosage: UNK ()
     Route: 048
     Dates: start: 2001
  4. AMANTADINE CITRATE [Suspect]
     Active Substance: AMANTADINE
     Indication: PRODUCT USED FOR UNKNOWN INDICATION
     Dosage: UNK ()
     Route: 065
     Dates: start: 2001
  5. LANSOPRAZOLE. [Suspect]
     Active Substance: LANSOPRAZOLE
     Indication: PARKINSON^S DISEASE
     Dosage: UNK ()
     Route: 065
     Dates: start: 2001

REACTIONS (7)
  - Dyspnoea [Unknown]
  - Cardiac disorder [Unknown]
  - Pulmonary hypertension [Unknown]
  - Product use in unapproved indication [Unknown]
  - Pulmonary embolism [Recovered/Resolved]
  - Pulmonary thrombosis [Recovered/Resolved]
  - Malaise [Unknown]

NARRATIVE: CASE EVENT DATE: 2001
